FAERS Safety Report 10043775 (Version 1)
Quarter: 2014Q1

REPORT INFORMATION
  Report Type: Spontaneous
  Country: US (occurrence: None)
  Receive Date: 20140327
  Receipt Date: 20140327
  Transmission Date: 20141002
  Serious: Yes (Hospitalization)
  Sender: FDA-Public Use
  Company Number: None

PATIENT
  Age: 73 Year
  Sex: Female

DRUGS (2)
  1. TECFIDERA [Suspect]
     Indication: MULTIPLE SCLEROSIS
     Route: 048
     Dates: start: 20140306, end: 20140313
  2. TECFIDERA [Suspect]
     Route: 048
     Dates: start: 20140325

REACTIONS (4)
  - Bacterial diarrhoea [None]
  - Atrial fibrillation [None]
  - Dehydration [None]
  - Nausea [None]
